FAERS Safety Report 20906417 (Version 1)
Quarter: 2022Q2

REPORT INFORMATION
  Report Type: Spontaneous
  Country: US (occurrence: None)
  Receive Date: 20220602
  Receipt Date: 20220602
  Transmission Date: 20220721
  Serious: Yes (Hospitalization)
  Sender: FDA-Public Use
  Company Number: None

PATIENT
  Age: 85 Year
  Sex: Male

DRUGS (1)
  1. CEFEPIME HYDROCHLORIDE [Suspect]
     Active Substance: CEFEPIME HYDROCHLORIDE
     Indication: Infection
     Dates: start: 20220415, end: 20220505

REACTIONS (3)
  - Confusional state [None]
  - Encephalopathy [None]
  - Acute kidney injury [None]

NARRATIVE: CASE EVENT DATE: 20220506
